FAERS Safety Report 20529641 (Version 4)
Quarter: 2022Q2

REPORT INFORMATION
  Report Type: Report from Study
  Country: DE (occurrence: DE)
  Receive Date: 20220301
  Receipt Date: 20220419
  Transmission Date: 20220721
  Serious: Yes (Other)
  Sender: FDA-Public Use
  Company Number: DE-NOVARTISPH-NVSC2022DE042956

PATIENT
  Sex: Male
  Weight: 93 kg

DRUGS (8)
  1. COSENTYX [Suspect]
     Active Substance: SECUKINUMAB
     Indication: Ankylosing spondylitis
     Dosage: 300 MG, ONCE/SINGLE
     Route: 065
     Dates: start: 20211017, end: 20211017
  2. COSENTYX [Suspect]
     Active Substance: SECUKINUMAB
     Dosage: 300 MG, ONCE/SINGLE
     Route: 065
     Dates: start: 20211024, end: 20211024
  3. COSENTYX [Suspect]
     Active Substance: SECUKINUMAB
     Dosage: 300 MG, ONCE/SINGLE
     Route: 065
     Dates: start: 20211031, end: 20211031
  4. COSENTYX [Suspect]
     Active Substance: SECUKINUMAB
     Dosage: 300 MG, ONCE/SINGLE
     Route: 065
     Dates: start: 20211107, end: 20211107
  5. COSENTYX [Suspect]
     Active Substance: SECUKINUMAB
     Dosage: 300 MG, ONCE/SINGLE
     Route: 065
     Dates: start: 20211114, end: 20211114
  6. COSENTYX [Suspect]
     Active Substance: SECUKINUMAB
     Dosage: 300 MG, ONCE/SINGLE
     Route: 065
     Dates: start: 20211121, end: 20211121
  7. COSENTYX [Suspect]
     Active Substance: SECUKINUMAB
     Dosage: 300 MG, ONCE/SINGLE
     Route: 065
     Dates: start: 20211219, end: 20211219
  8. COSENTYX [Suspect]
     Active Substance: SECUKINUMAB
     Dosage: 300 MG, ONCE/SINGLE
     Route: 065
     Dates: start: 20220116, end: 20220116

REACTIONS (5)
  - C-reactive protein increased [Recovered/Resolved]
  - Inflammatory pain [Recovered/Resolved]
  - Inflammatory marker increased [Recovered/Resolved]
  - Drug ineffective [Recovered/Resolved]
  - Therapy non-responder [Recovered/Resolved]

NARRATIVE: CASE EVENT DATE: 20220201
